FAERS Safety Report 6395863-7 (Version None)
Quarter: 2009Q4

REPORT INFORMATION
  Report Type: 
  Country: None (occurrence: None)
  Receive Date: 20091009
  Receipt Date: 20090914
  Transmission Date: 20100525
  Serious: No
  Sender: FDA-Public Use
  Company Number: A0799116A

PATIENT
  Age: 76 Year
  Sex: Female

DRUGS (12)
  1. TYKERB [Suspect]
     Indication: BREAST CANCER
     Dosage: 6TAB PER DAY
     Route: 048
     Dates: start: 20090601
  2. LEXAPRO [Concomitant]
  3. METFORMIN HCL [Concomitant]
  4. MECLIZINE [Concomitant]
  5. BENICAR HCT [Concomitant]
  6. NEXIUM [Concomitant]
  7. TRICOR [Concomitant]
  8. VITAMIN D [Concomitant]
  9. SIMVASTATIN [Concomitant]
  10. FOLIC ACID [Concomitant]
  11. ALLOPURINOL [Concomitant]
  12. PROPRANOLOL EXTENDED RELEASE [Concomitant]

REACTIONS (4)
  - DIARRHOEA [None]
  - DYSPNOEA [None]
  - FLATULENCE [None]
  - PRURITUS [None]
